FAERS Safety Report 10809905 (Version 1)
Quarter: 2015Q1

REPORT INFORMATION
  Report Type: Spontaneous
  Country: US (occurrence: None)
  Receive Date: 20150213
  Receipt Date: 20150213
  Transmission Date: 20150721
  Serious: No
  Sender: FDA-Public Use
  Company Number: None

PATIENT
  Age: 78 Year
  Sex: Female
  Weight: 68.04 kg

DRUGS (23)
  1. MIRAPEX [Concomitant]
     Active Substance: PRAMIPEXOLE DIHYDROCHLORIDE
  2. DESONIDE. [Concomitant]
     Active Substance: DESONIDE
  3. VITAMIN C [Concomitant]
     Active Substance: ASCORBIC ACID
  4. VITAMIN D3 [Concomitant]
     Active Substance: CHOLECALCIFEROL
  5. BENICAR [Concomitant]
     Active Substance: OLMESARTAN MEDOXOMIL
  6. SALICYLIC ACID. [Concomitant]
     Active Substance: SALICYLIC ACID
  7. CLOBETASOL [Concomitant]
     Active Substance: CLOBETASOL
  8. CALTRATE WITH VITAMIN D [Concomitant]
     Active Substance: CALCIUM CARBONATE\VITAMIN D
  9. HYDROCORTISONE. [Concomitant]
     Active Substance: HYDROCORTISONE
  10. PEPCID COMPLETE [Concomitant]
     Active Substance: CALCIUM CARBONATE\FAMOTIDINE\MAGNESIUM HYDROXIDE
  11. GAS-X EXTRA STRENGTH [Concomitant]
     Active Substance: DIMETHICONE
  12. NABUMETONE. [Concomitant]
     Active Substance: NABUMETONE
  13. FLUCONAZOLE. [Suspect]
     Active Substance: FLUCONAZOLE
     Indication: RIFT VALLEY FEVER
     Dosage: 2 PILLS 1-AM 1-6:00PM
     Route: 048
     Dates: start: 201407, end: 201409
  14. ASPIRIN. [Concomitant]
     Active Substance: ASPIRIN
  15. GENTEAL MILD [Concomitant]
     Active Substance: HYPROMELLOSE 2910 (4000 MPA.S)
  16. BONIVA [Concomitant]
     Active Substance: IBANDRONATE SODIUM
  17. ALLEGRA [Concomitant]
     Active Substance: FEXOFENADINE HYDROCHLORIDE
  18. DEXILANT [Concomitant]
     Active Substance: DEXLANSOPRAZOLE
  19. FERROUS SULFATE [Concomitant]
     Active Substance: FERROUS SULFATE\FERROUS SULFATE, DRIED
  20. NASACORT [Concomitant]
     Active Substance: TRIAMCINOLONE ACETONIDE
  21. SODIUM CHLORIDE. [Concomitant]
     Active Substance: SODIUM CHLORIDE
  22. CENTRUM SILVER [Concomitant]
     Active Substance: VITAMINS
  23. LACTAID [Concomitant]
     Active Substance: LACTASE

REACTIONS (5)
  - Adverse drug reaction [None]
  - Therapeutic response unexpected [None]
  - Alopecia [None]
  - Madarosis [None]
  - Therapy cessation [None]
